FAERS Safety Report 25437947 (Version 1)
Quarter: 2025Q2

REPORT INFORMATION
  Report Type: Report from Study
  Country: US (occurrence: US)
  Receive Date: 20250616
  Receipt Date: 20250616
  Transmission Date: 20250716
  Serious: Yes (Other)
  Sender: ACADIA PHARMACEUTICALS
  Company Number: US-ACADIA PHARMACEUTICALS INC.-ACA-2025-PIM-006958

PATIENT
  Age: 75 Year
  Sex: Female

DRUGS (8)
  1. NUPLAZID [Suspect]
     Active Substance: PIMAVANSERIN TARTRATE
     Indication: Parkinson^s disease
     Dosage: 34 MILLIGRAM, QD
     Route: 048
     Dates: start: 20241221
  2. MELOXICAM [Concomitant]
     Active Substance: MELOXICAM
  3. CARBIDOPA\LEVODOPA [Concomitant]
     Active Substance: CARBIDOPA\LEVODOPA
  4. DONEPEZIL [Concomitant]
     Active Substance: DONEPEZIL
  5. VALSARTAN [Concomitant]
     Active Substance: VALSARTAN
  6. QUETIAPINE [Concomitant]
     Active Substance: QUETIAPINE
  7. PANTOPRAZOLE [Concomitant]
     Active Substance: PANTOPRAZOLE
  8. MELATONIN [Concomitant]
     Active Substance: MELATONIN

REACTIONS (3)
  - Parkinson^s disease [Not Recovered/Not Resolved]
  - Delirium [Not Recovered/Not Resolved]
  - Mania [Not Recovered/Not Resolved]

NARRATIVE: CASE EVENT DATE: 20250401
